FAERS Safety Report 9646508 (Version 3)
Quarter: 2016Q1

REPORT INFORMATION
  Report Type: Report from Study
  Country: BR (occurrence: BR)
  Receive Date: 20131025
  Receipt Date: 20160307
  Transmission Date: 20160526
  Serious: Yes (Hospitalization, Other)
  Sender: FDA-Public Use
  Company Number: BR-ABBVIE-13P-020-1064136-00

PATIENT
  Age: 35 Year
  Sex: Male
  Weight: 77 kg

DRUGS (9)
  1. HUMIRA [Suspect]
     Active Substance: ADALIMUMAB
     Indication: CROHN^S DISEASE
     Dosage: FIRST DOSE
     Route: 058
     Dates: start: 20130128, end: 20130128
  2. HUMIRA [Suspect]
     Active Substance: ADALIMUMAB
     Dosage: THIRD DOSE
     Route: 058
  3. HUMIRA [Suspect]
     Active Substance: ADALIMUMAB
     Route: 058
     Dates: start: 201303, end: 20130806
  4. AZATHIOPRINE. [Suspect]
     Active Substance: AZATHIOPRINE
     Indication: CROHN^S DISEASE
     Route: 048
     Dates: start: 20130127, end: 201302
  5. TRAMAL [Concomitant]
     Active Substance: TRAMADOL
     Indication: PAIN
     Dosage: EVERY 8 HR AS REQUIRED
     Route: 048
     Dates: start: 2012
  6. FOLIC ACID. [Concomitant]
     Active Substance: FOLIC ACID
     Indication: PRODUCT USED FOR UNKNOWN INDICATION
  7. DIPYRONE [Concomitant]
     Active Substance: DIPYRONE
     Indication: PAIN
     Dosage: EVERY 4 HOURS AS REQUIRED
     Route: 048
     Dates: start: 2012
  8. HUMIRA [Suspect]
     Active Substance: ADALIMUMAB
     Dosage: SECOND DOSE
     Route: 058
  9. HUMIRA [Suspect]
     Active Substance: ADALIMUMAB
     Route: 058

REACTIONS (24)
  - Immunodeficiency [Unknown]
  - Hyperhidrosis [Recovered/Resolved]
  - Anaemia [Recovered/Resolved]
  - Rhinorrhoea [Recovered/Resolved]
  - Leukopenia [Recovering/Resolving]
  - Platelet count decreased [Recovered/Resolved]
  - Petechiae [Recovered/Resolved]
  - Tinnitus [Recovered/Resolved]
  - Alopecia [Unknown]
  - Anal fistula [Recovering/Resolving]
  - Anal fistula [Unknown]
  - Crohn^s disease [Unknown]
  - Pyrexia [Recovered/Resolved]
  - Sciatica [Recovered/Resolved]
  - Weight decreased [Unknown]
  - Dizziness [Recovered/Resolved]
  - Neuritis [Recovered/Resolved]
  - Respiratory tract irritation [Unknown]
  - Deafness [Recovered/Resolved]
  - Blood glucose abnormal [Recovered/Resolved]
  - Pain [Unknown]
  - Anal fistula [Unknown]
  - Dry mouth [Recovered/Resolved]
  - Drug ineffective [Recovered/Resolved]

NARRATIVE: CASE EVENT DATE: 201302
